FAERS Safety Report 24442105 (Version 4)
Quarter: 2025Q1

REPORT INFORMATION
  Report Type: Report from Study
  Country: US (occurrence: US)
  Receive Date: 20241016
  Receipt Date: 20250106
  Transmission Date: 20250408
  Serious: Yes (Other)
  Sender: TAKEDA
  Company Number: US-TAKEDA-2024TUS099198

PATIENT
  Age: 77 Year
  Sex: Female

DRUGS (8)
  1. FRUQUINTINIB [Suspect]
     Active Substance: FRUQUINTINIB
     Indication: Colon cancer
  2. FRUQUINTINIB [Suspect]
     Active Substance: FRUQUINTINIB
  3. FRUQUINTINIB [Suspect]
     Active Substance: FRUQUINTINIB
  4. ALEVE [Concomitant]
     Active Substance: NAPROXEN SODIUM
  5. FERROUS SULFATE [Concomitant]
     Active Substance: FERROUS SULFATE
  6. LOPERAMIDE [Concomitant]
     Active Substance: LOPERAMIDE
  7. VITAMIN B12 [Concomitant]
     Active Substance: CYANOCOBALAMIN
  8. VITAMIN D3 [Concomitant]
     Active Substance: CHOLECALCIFEROL

REACTIONS (8)
  - Neuropathy peripheral [Not Recovered/Not Resolved]
  - Colon cancer [Unknown]
  - Ascites [Unknown]
  - Myalgia [Not Recovered/Not Resolved]
  - Abdominal discomfort [Recovering/Resolving]
  - Pain in extremity [Unknown]
  - Diarrhoea [Recovering/Resolving]
  - Fatigue [Unknown]

NARRATIVE: CASE EVENT DATE: 20241129
